FAERS Safety Report 6794766-3 (Version None)
Quarter: 2010Q2

REPORT INFORMATION
  Report Type: 
  Country: None (occurrence: None)
  Receive Date: 20100625
  Receipt Date: 20100330
  Transmission Date: 20101027
  Serious: Yes (Other)
  Sender: FDA-Public Use
  Company Number: US-ASTRAZENECA-2006UW04355

PATIENT
  Age: 506 Month
  Sex: Male
  Weight: 85.3 kg

DRUGS (30)
  1. SEROQUEL [Suspect]
     Indication: DEPRESSION
     Dosage: 25MG-600MG
     Route: 048
     Dates: start: 20021028
  2. SEROQUEL [Suspect]
     Indication: ANXIETY
     Dosage: 25MG-600MG
     Route: 048
     Dates: start: 20021028
  3. SEROQUEL [Suspect]
     Indication: BIPOLAR DISORDER
     Dosage: 25MG-600MG
     Route: 048
     Dates: start: 20021028
  4. SEROQUEL [Suspect]
     Indication: SLEEP DISORDER
     Dosage: 25MG-600MG
     Route: 048
     Dates: start: 20021028
  5. SEROQUEL [Suspect]
     Indication: SCHIZOPHRENIA
     Dosage: 25MG-600MG
     Route: 048
     Dates: start: 20021028
  6. SEROQUEL [Suspect]
     Dosage: 100 MG TO 600 MG
     Route: 048
     Dates: start: 20021201, end: 20051001
  7. SEROQUEL [Suspect]
     Dosage: 100 MG TO 600 MG
     Route: 048
     Dates: start: 20021201, end: 20051001
  8. SEROQUEL [Suspect]
     Dosage: 100 MG TO 600 MG
     Route: 048
     Dates: start: 20021201, end: 20051001
  9. SEROQUEL [Suspect]
     Dosage: 100 MG TO 600 MG
     Route: 048
     Dates: start: 20021201, end: 20051001
  10. SEROQUEL [Suspect]
     Dosage: 100 MG TO 600 MG
     Route: 048
     Dates: start: 20021201, end: 20051001
  11. SEROQUEL [Suspect]
     Dosage: 25 MG-100 MG
     Route: 048
     Dates: start: 20021212
  12. SEROQUEL [Suspect]
     Dosage: 25 MG-100 MG
     Route: 048
     Dates: start: 20021212
  13. SEROQUEL [Suspect]
     Dosage: 25 MG-100 MG
     Route: 048
     Dates: start: 20021212
  14. SEROQUEL [Suspect]
     Dosage: 25 MG-100 MG
     Route: 048
     Dates: start: 20021212
  15. SEROQUEL [Suspect]
     Dosage: 25 MG-100 MG
     Route: 048
     Dates: start: 20021212
  16. GEODON [Concomitant]
     Dates: start: 20030701, end: 20030901
  17. METFORMIN HCL [Concomitant]
     Route: 048
     Dates: start: 20050916
  18. GLYBURIDE [Concomitant]
     Dosage: 5MG, 2 TAB BID
     Route: 048
     Dates: start: 20050915
  19. AMITRIPTYLINE [Concomitant]
  20. IBUPROFEN [Concomitant]
  21. EFFEXOR [Concomitant]
  22. TRAZODONE HYDROCHLORIDE [Concomitant]
  23. NEURONTIN [Concomitant]
  24. DEPAKOTE [Concomitant]
     Dates: start: 20021028
  25. PAXIL [Concomitant]
     Dosage: 20MG-40MG
     Dates: start: 20021028
  26. VIAGRA [Concomitant]
  27. KENALOG [Concomitant]
  28. CYMBALTA [Concomitant]
  29. PREDNISOLONE [Concomitant]
  30. TYLENOL-500 [Concomitant]

REACTIONS (7)
  - BLOOD CHOLESTEROL INCREASED [None]
  - BLOOD TRIGLYCERIDES INCREASED [None]
  - DIABETES MELLITUS [None]
  - DIABETIC NEUROPATHY [None]
  - DIABETIC RETINAL OEDEMA [None]
  - DIABETIC RETINOPATHY [None]
  - TYPE 2 DIABETES MELLITUS [None]
